FAERS Safety Report 7725567-7 (Version None)
Quarter: 2011Q3

REPORT INFORMATION
  Report Type: 
  Country: None (occurrence: None)
  Receive Date: 20110902
  Receipt Date: 20110829
  Transmission Date: 20111222
  Serious: Yes (Other)
  Sender: FDA-Public Use
  Company Number: US-TEVA-298687USA

PATIENT
  Sex: Male
  Weight: 82.174 kg

DRUGS (6)
  1. COREG [Concomitant]
  2. FUROSEMIDE [Concomitant]
  3. POTASSIUM [Concomitant]
  4. LANOXIN [Concomitant]
  5. LISINOPRIL [Concomitant]
  6. COPAXONE [Suspect]
     Indication: MULTIPLE SCLEROSIS
     Dosage: 20 MILLIGRAM;
     Route: 058
     Dates: start: 20110129

REACTIONS (1)
  - EJECTION FRACTION DECREASED [None]
